FAERS Safety Report 15666253 (Version 1)
Quarter: 2018Q4

REPORT INFORMATION
  Report Type: Spontaneous
  Country: US (occurrence: US)
  Receive Date: 20181116
  Receipt Date: 20181116
  Transmission Date: 20190205
  Serious: Yes (Life-Threatening)
  Sender: FDA-Public Use
  Company Number: None

PATIENT
  Age: 34 Year
  Sex: Female

DRUGS (1)
  1. IRON SUCROSE [Suspect]
     Active Substance: IRON SUCROSE
     Indication: MENOMETRORRHAGIA
     Route: 042
     Dates: start: 20180705, end: 20180705

REACTIONS (3)
  - Anaphylactic reaction [None]
  - Angioedema [None]
  - Infusion related reaction [None]

NARRATIVE: CASE EVENT DATE: 20180705
